FAERS Safety Report 14848445 (Version 1)
Quarter: 2018Q2

REPORT INFORMATION
  Report Type: Spontaneous
  Country: US (occurrence: US)
  Receive Date: 20180504
  Receipt Date: 20180504
  Transmission Date: 20180711
  Serious: No
  Sender: FDA-Public Use
  Company Number: US-VIFOR (INTERNATIONAL) INC.-VIT-2018-04144

PATIENT
  Sex: Male

DRUGS (13)
  1. PANTOPRAZOLE SODIUM SESQUIHYDRATE [Concomitant]
     Active Substance: PANTOPRAZOLE SODIUM
  2. VELTASSA [Suspect]
     Active Substance: PATIROMER
     Route: 048
  3. FLUOCINONIDE. [Concomitant]
     Active Substance: FLUOCINONIDE
  4. VELTASSA [Suspect]
     Active Substance: PATIROMER
     Indication: HYPERKALAEMIA
     Route: 048
  5. LEVOTHYROXINE SODIUM. [Concomitant]
     Active Substance: LEVOTHYROXINE SODIUM
  6. XARELTO [Concomitant]
     Active Substance: RIVAROXABAN
  7. CARVEDILOL. [Concomitant]
     Active Substance: CARVEDILOL
  8. HYDROCODONE [Concomitant]
     Active Substance: HYDROCODONE
  9. LASIX [Concomitant]
     Active Substance: FUROSEMIDE
  10. LYRICA [Concomitant]
     Active Substance: PREGABALIN
  11. SENNA ALEXANDRINA [Concomitant]
     Active Substance: SENNA LEAF
  12. PARACETAMOL [Concomitant]
     Active Substance: ACETAMINOPHEN
  13. AMLODIPINE BESILATE [Concomitant]
     Active Substance: AMLODIPINE BESYLATE

REACTIONS (2)
  - No adverse event [Unknown]
  - Off label use [Unknown]
